FAERS Safety Report 5345151-2 (Version None)
Quarter: 2007Q2

REPORT INFORMATION
  Report Type: 
  Country: None (occurrence: None)
  Receive Date: 20070417
  Receipt Date: 20070111
  Transmission Date: 20071010
  Serious: Yes (Hospitalization)
  Sender: FDA-Public Use
  Company Number: 06P-163-0347545-00

PATIENT
  Age: 51 Year
  Sex: Female

DRUGS (12)
  1. VALPROIC ACID [Suspect]
     Indication: CONVULSION
     Dates: start: 20060924, end: 20060929
  2. FLUOXETINE [Concomitant]
  3. SINEMET [Concomitant]
  4. NAPROXEN [Concomitant]
  5. OMEPRAZOLE [Concomitant]
  6. TOPIRAMATE [Concomitant]
  7. TRAZODONE HCL [Concomitant]
  8. LORAZEPAM [Concomitant]
  9. PHENYTOIN [Concomitant]
  10. LACTULOSE [Concomitant]
  11. LY317615 [Concomitant]
  12. LEVETIRACETAM [Concomitant]

REACTIONS (2)
  - AMMONIA INCREASED [None]
  - CONFUSIONAL STATE [None]
